FAERS Safety Report 13292621 (Version 3)
Quarter: 2017Q1

REPORT INFORMATION
  Report Type: Spontaneous
  Country: IT (occurrence: IT)
  Receive Date: 20170303
  Receipt Date: 20170328
  Transmission Date: 20170428
  Serious: Yes (Other)
  Sender: FDA-Public Use
  Company Number: IT-PFIZER INC-2017091547

PATIENT
  Age: 58 Year
  Sex: Female

DRUGS (8)
  1. CO-EFFERALGAN [Concomitant]
     Active Substance: ACETAMINOPHEN\CODEINE PHOSPHATE
     Dosage: 1 DF, EVERY 8 HOURS
  2. ABRAXANE [Suspect]
     Active Substance: PACLITAXEL
     Dosage: 210 MG, CYCLIC
     Route: 042
     Dates: start: 20170221, end: 20170221
  3. GEMCITABINE HYDROCHLORIDE. [Suspect]
     Active Substance: GEMCITABINE HYDROCHLORIDE
     Dosage: 1700 MG, CYCLIC
     Route: 042
     Dates: start: 20170221, end: 20170221
  4. ABRAXANE [Suspect]
     Active Substance: PACLITAXEL
     Indication: PANCREATIC CARCINOMA METASTATIC
     Dosage: UNK
     Dates: start: 20160614
  5. LANSOPRAZOLE. [Concomitant]
     Active Substance: LANSOPRAZOLE
     Dosage: 15 MG, FASTING
  6. TAPAZOLE [Concomitant]
     Active Substance: METHIMAZOLE
     Dosage: 2.5 MG, AT THE MORNING
  7. GEMCITABINE HYDROCHLORIDE. [Suspect]
     Active Substance: GEMCITABINE HYDROCHLORIDE
     Indication: PANCREATIC CARCINOMA METASTATIC
     Dosage: UNK
     Dates: start: 20160614
  8. COAPROVEL [Concomitant]
     Active Substance: HYDROCHLOROTHIAZIDE\IRBESARTAN
     Dosage: 300 MG, DAILY

REACTIONS (1)
  - Neurotoxicity [Recovering/Resolving]
